FAERS Safety Report 11318696 (Version 1)
Quarter: 2015Q3

REPORT INFORMATION
  Report Type: Spontaneous
  Country: BR (occurrence: BR)
  Receive Date: 20150729
  Receipt Date: 20150729
  Transmission Date: 20151125
  Serious: Yes (Disabling, Other)
  Sender: FDA-Public Use
  Company Number: BR-ROCHE-1612469

PATIENT
  Age: 75 Year
  Sex: Female
  Weight: 62 kg

DRUGS (1)
  1. ACTEMRA [Suspect]
     Active Substance: TOCILIZUMAB
     Indication: RHEUMATOID ARTHRITIS
     Route: 065
     Dates: start: 20150716

REACTIONS (5)
  - Dysgeusia [Not Recovered/Not Resolved]
  - Bedridden [Unknown]
  - Joint swelling [Unknown]
  - Pain [Not Recovered/Not Resolved]
  - Decreased appetite [Not Recovered/Not Resolved]

NARRATIVE: CASE EVENT DATE: 20150716
